FAERS Safety Report 19027027 (Version 1)
Quarter: 2021Q1

REPORT INFORMATION
  Report Type: Spontaneous
  Country: US (occurrence: US)
  Receive Date: 20210318
  Receipt Date: 20210318
  Transmission Date: 20210420
  Serious: Yes (Other)
  Sender: FDA-Public Use
  Company Number: US-SA-2021SA075519

PATIENT
  Age: 71 Year
  Sex: Male

DRUGS (1)
  1. LANTUS [Suspect]
     Active Substance: INSULIN GLARGINE
     Indication: TYPE 2 DIABETES MELLITUS
     Dosage: DRUG STRUCTURE DOSAGE : 10 UNITS IN THE MORNING, AND 15 UNITS IN THE EVENING

REACTIONS (8)
  - Spondylitis [Unknown]
  - Spinal stenosis [Unknown]
  - Diabetes mellitus inadequate control [Unknown]
  - Fall [Unknown]
  - Mental disorder [Unknown]
  - Scoliosis [Unknown]
  - Product storage error [Unknown]
  - Inappropriate schedule of product administration [Unknown]
